FAERS Safety Report 19607537 (Version 1)
Quarter: 2021Q3

REPORT INFORMATION
  Report Type: Spontaneous
  Country: US (occurrence: US)
  Receive Date: 20210726
  Receipt Date: 20210726
  Transmission Date: 20211014
  Serious: No
  Sender: FDA-Public Use
  Company Number: US-CELGENEUS-USA-20210704268

PATIENT
  Sex: Male
  Weight: 88.53 kg

DRUGS (1)
  1. REVLIMID [Suspect]
     Active Substance: LENALIDOMIDE
     Indication: PROSTATE CANCER
     Dosage: DOSE : 25 MG;     FREQ : 1 CAP 21ON 7 OFF
     Route: 048

REACTIONS (2)
  - Joint swelling [Unknown]
  - Pruritus [Unknown]
